FAERS Safety Report 18231658 (Version 14)
Quarter: 2022Q3

REPORT INFORMATION
  Report Type: Report from Study
  Country: JP (occurrence: JP)
  Receive Date: 20200904
  Receipt Date: 20220824
  Transmission Date: 20221027
  Serious: Yes (Hospitalization)
  Sender: FDA-Public Use
  Company Number: NVSJ2020JP008368

PATIENT
  Age: 15 Year
  Sex: Male
  Weight: 29.6 kg

DRUGS (45)
  1. ILARIS [Suspect]
     Active Substance: CANAKINUMAB
     Indication: Still^s disease
     Dosage: 96 MG
     Route: 058
     Dates: start: 20190819
  2. ILARIS [Suspect]
     Active Substance: CANAKINUMAB
     Dosage: 96 MG
     Route: 058
     Dates: start: 20190918
  3. ILARIS [Suspect]
     Active Substance: CANAKINUMAB
     Dosage: 96 MG
     Route: 058
     Dates: start: 20191016
  4. ILARIS [Suspect]
     Active Substance: CANAKINUMAB
     Dosage: 96 MG
     Route: 058
     Dates: start: 20191113
  5. ILARIS [Suspect]
     Active Substance: CANAKINUMAB
     Dosage: 96 MG
     Route: 058
     Dates: start: 20191213
  6. ILARIS [Suspect]
     Active Substance: CANAKINUMAB
     Dosage: 101 MG
     Route: 058
     Dates: start: 20200109
  7. ILARIS [Suspect]
     Active Substance: CANAKINUMAB
     Dosage: 101 MG
     Route: 058
     Dates: start: 20200205
  8. ILARIS [Suspect]
     Active Substance: CANAKINUMAB
     Dosage: 108 MG
     Route: 058
     Dates: start: 20200305
  9. ILARIS [Suspect]
     Active Substance: CANAKINUMAB
     Dosage: 108 MG
     Route: 058
     Dates: start: 20200403
  10. ILARIS [Suspect]
     Active Substance: CANAKINUMAB
     Dosage: 108 MG
     Route: 058
     Dates: start: 20200427
  11. ILARIS [Suspect]
     Active Substance: CANAKINUMAB
     Dosage: 114 MG
     Route: 058
     Dates: start: 20200525
  12. ILARIS [Suspect]
     Active Substance: CANAKINUMAB
     Dosage: 114 MG
     Route: 058
     Dates: start: 20200622
  13. ILARIS [Suspect]
     Active Substance: CANAKINUMAB
     Dosage: 114 MG
     Route: 058
     Dates: start: 20200722
  14. ILARIS [Suspect]
     Active Substance: CANAKINUMAB
     Dosage: 120 MG
     Route: 058
     Dates: start: 20200825
  15. ILARIS [Suspect]
     Active Substance: CANAKINUMAB
     Dosage: 120 MG
     Route: 058
     Dates: start: 20200923
  16. ILARIS [Suspect]
     Active Substance: CANAKINUMAB
     Dosage: 120 MG
     Route: 058
     Dates: start: 20201021
  17. ILARIS [Suspect]
     Active Substance: CANAKINUMAB
     Dosage: 120 MG
     Route: 058
     Dates: start: 20201118
  18. ILARIS [Suspect]
     Active Substance: CANAKINUMAB
     Dosage: 133 MG
     Route: 058
     Dates: start: 20201214
  19. ILARIS [Suspect]
     Active Substance: CANAKINUMAB
     Dosage: 135 MG
     Route: 058
     Dates: start: 20210113
  20. ILARIS [Suspect]
     Active Substance: CANAKINUMAB
     Dosage: 135 MG
     Route: 058
     Dates: start: 20210208
  21. ILARIS [Suspect]
     Active Substance: CANAKINUMAB
     Dosage: 135 MG
     Route: 058
     Dates: start: 20210308
  22. ILARIS [Suspect]
     Active Substance: CANAKINUMAB
     Dosage: 135 MG
     Route: 058
     Dates: start: 20210403
  23. ILARIS [Suspect]
     Active Substance: CANAKINUMAB
     Dosage: 135 MG
     Route: 058
     Dates: start: 20210428
  24. ILARIS [Suspect]
     Active Substance: CANAKINUMAB
     Dosage: 135 MG
     Route: 058
     Dates: start: 20210524
  25. ILARIS [Suspect]
     Active Substance: CANAKINUMAB
     Dosage: 135 MG
     Route: 058
     Dates: start: 20210621
  26. ILARIS [Suspect]
     Active Substance: CANAKINUMAB
     Dosage: 135 MG
     Route: 058
     Dates: start: 20210717
  27. ILARIS [Suspect]
     Active Substance: CANAKINUMAB
     Dosage: 135 MG
     Route: 058
     Dates: start: 20210814
  28. PREDNISOLONE [Concomitant]
     Active Substance: PREDNISOLONE
     Indication: Inflammation
     Dosage: 3.5 MG
     Route: 048
     Dates: start: 20190218, end: 20191027
  29. PREDNISOLONE [Concomitant]
     Active Substance: PREDNISOLONE
     Dosage: 3 MG
     Route: 048
     Dates: start: 20191028, end: 20200815
  30. PREDNISOLONE [Concomitant]
     Active Substance: PREDNISOLONE
     Dosage: 30 MG
     Route: 048
     Dates: start: 20200816, end: 20200821
  31. PREDNISOLONE [Concomitant]
     Active Substance: PREDNISOLONE
     Dosage: 30 MG
     Route: 048
     Dates: start: 20200822, end: 20200825
  32. PREDNISOLONE [Concomitant]
     Active Substance: PREDNISOLONE
     Dosage: 25 MG
     Route: 048
     Dates: start: 20200826, end: 20200902
  33. PREDNISOLONE [Concomitant]
     Active Substance: PREDNISOLONE
     Dosage: 22.5 MG
     Route: 048
     Dates: start: 20200903, end: 20200910
  34. PREDNISOLONE [Concomitant]
     Active Substance: PREDNISOLONE
     Dosage: 20 MG
     Route: 048
     Dates: start: 20200911, end: 20200916
  35. PREDNISOLONE [Concomitant]
     Active Substance: PREDNISOLONE
     Dosage: 17.5 MG
     Route: 048
     Dates: start: 20200917, end: 20200922
  36. PREDNISOLONE [Concomitant]
     Active Substance: PREDNISOLONE
     Dosage: 15 MG
     Route: 048
     Dates: start: 20200923, end: 20201011
  37. PREDNISOLONE [Concomitant]
     Active Substance: PREDNISOLONE
     Dosage: 12 MG
     Route: 048
     Dates: start: 20201012, end: 20201129
  38. PREDNISOLONE [Concomitant]
     Active Substance: PREDNISOLONE
     Dosage: 11 MG
     Route: 048
     Dates: start: 20201130, end: 20201213
  39. PREDNISOLONE [Concomitant]
     Active Substance: PREDNISOLONE
     Dosage: 10 MG
     Route: 048
     Dates: start: 20201214, end: 20210112
  40. PREDNISOLONE [Concomitant]
     Active Substance: PREDNISOLONE
     Dosage: 9 MG
     Route: 048
     Dates: start: 20210113, end: 20210321
  41. PREDNISOLONE [Concomitant]
     Active Substance: PREDNISOLONE
     Dosage: 8 MG
     Route: 048
     Dates: start: 20210322, end: 20210523
  42. PREDNISOLONE [Concomitant]
     Active Substance: PREDNISOLONE
     Dosage: 6 MG
     Route: 048
     Dates: start: 20210524, end: 20210725
  43. PREDNISOLONE [Concomitant]
     Active Substance: PREDNISOLONE
     Dosage: 20 MG
     Route: 048
     Dates: start: 20210726, end: 20210822
  44. PREDNISOLONE [Concomitant]
     Active Substance: PREDNISOLONE
     Dosage: 17.5 MG
     Route: 048
     Dates: start: 20210823
  45. TACROLIMUS [Concomitant]
     Active Substance: TACROLIMUS
     Indication: Still^s disease
     Dosage: 1 MG
     Route: 048
     Dates: start: 20170417, end: 20200323

REACTIONS (8)
  - Haemophagocytic lymphohistiocytosis [Recovered/Resolved]
  - Pyrexia [Recovering/Resolving]
  - Rash [Recovering/Resolving]
  - Blood alkaline phosphatase increased [Unknown]
  - Still^s disease [Recovered/Resolved]
  - Arthralgia [Unknown]
  - Disease progression [Recovered/Resolved]
  - Fibrin D dimer increased [Recovered/Resolved]

NARRATIVE: CASE EVENT DATE: 20200816
